FAERS Safety Report 16933956 (Version 3)
Quarter: 2020Q3

REPORT INFORMATION
  Report Type: Other
  Country: US (occurrence: US)
  Receive Date: 20191018
  Receipt Date: 20200824
  Transmission Date: 20201102
  Serious: Yes (Hospitalization, Other)
  Sender: FDA-Public Use
  Company Number: US-ROCHE-2437512

PATIENT
  Sex: Male
  Weight: 117.9 kg

DRUGS (3)
  1. OCREVUS [Suspect]
     Active Substance: OCRELIZUMAB
     Indication: RELAPSING MULTIPLE SCLEROSIS
     Dosage: SUBSEQUENT DOSE: 11/JAN/2019 AND 28/JUN/2019
     Route: 065
     Dates: start: 20181228
  2. OCREVUS [Suspect]
     Active Substance: OCRELIZUMAB
     Route: 065
     Dates: start: 20200727
  3. OCREVUS [Suspect]
     Active Substance: OCRELIZUMAB
     Indication: MULTIPLE SCLEROSIS
     Route: 065
     Dates: start: 20191227

REACTIONS (6)
  - Candida infection [Not Recovered/Not Resolved]
  - Asthenia [Unknown]
  - CSF oligoclonal band present [Unknown]
  - Blood immunoglobulin G increased [Unknown]
  - Paraesthesia [Unknown]
  - Urinary tract infection [Unknown]
